FAERS Safety Report 7751957-2 (Version None)
Quarter: 2011Q3

REPORT INFORMATION
  Report Type: 
  Country: None (occurrence: None)
  Receive Date: 20110915
  Receipt Date: 20110907
  Transmission Date: 20111222
  Serious: Yes (Hospitalization)
  Sender: FDA-Public Use
  Company Number: NL-JNJFOC-20110902969

PATIENT
  Sex: Female
  Weight: 78.5 kg

DRUGS (4)
  1. IMURAN [Suspect]
     Indication: CROHN'S DISEASE
     Route: 048
     Dates: start: 20040101, end: 20110501
  2. PERINDOPRIL ERBUMINE [Concomitant]
     Dosage: TIMES PER 1 DF
     Route: 065
  3. MOVICOLON POWDER [Concomitant]
     Dosage: TIMES PER 1 DF
     Route: 065
  4. REMICADE [Suspect]
     Indication: CROHN'S DISEASE
     Route: 042
     Dates: start: 20040101, end: 20110501

REACTIONS (1)
  - HODGKIN'S DISEASE MIXED CELLULARITY STAGE III [None]
